FAERS Safety Report 17837048 (Version 1)
Quarter: 2020Q2

REPORT INFORMATION
  Report Type: Spontaneous
  Country: US (occurrence: US)
  Receive Date: 20200529
  Receipt Date: 20200529
  Transmission Date: 20200714
  Serious: Yes (Other)
  Sender: FDA-Public Use
  Company Number: US-US WORLDMEDS, LLC-USW202005-001040

PATIENT
  Age: 63 Year
  Sex: Male

DRUGS (5)
  1. CARTIA [Concomitant]
     Indication: HYPERTENSION
  2. CRESTOR [Concomitant]
     Active Substance: ROSUVASTATIN CALCIUM
     Indication: HYPERLIPIDAEMIA
     Dosage: UNKNOWN
  3. TOPROL XL [Concomitant]
     Active Substance: METOPROLOL SUCCINATE
     Indication: HEART RATE ABNORMAL
  4. LUCEMYRA [Suspect]
     Active Substance: LOFEXIDINE
     Indication: PRODUCT USED FOR UNKNOWN INDICATION
     Dosage: FOR 9 DAYS
     Dates: start: 20200508
  5. NIACIN. [Concomitant]
     Active Substance: NIACIN
     Indication: NEUROPATHY PERIPHERAL
     Dosage: UNKNOWN

REACTIONS (5)
  - Fall [Unknown]
  - Product odour abnormal [Unknown]
  - Bradycardia [Unknown]
  - Orthostatic hypertension [Unknown]
  - Vomiting [Unknown]

NARRATIVE: CASE EVENT DATE: 202005
